FAERS Safety Report 20508743 (Version 2)
Quarter: 2023Q1

REPORT INFORMATION
  Report Type: Spontaneous
  Country: US (occurrence: US)
  Receive Date: 20220223
  Receipt Date: 20230314
  Transmission Date: 20230417
  Serious: Yes (Other)
  Sender: FDA-Public Use
  Company Number: US-NOVARTISPH-NVSC2022US041488

PATIENT
  Age: 32 Year
  Sex: Female

DRUGS (2)
  1. TERBINAFINE [Suspect]
     Active Substance: TERBINAFINE
     Indication: Tinea pedis
     Dosage: 250 MG, 1D (FIRST COURSE)
     Route: 048
  2. TERBINAFINE [Suspect]
     Active Substance: TERBINAFINE
     Dosage: 250 MG, QD (SECOND COURSE 2 WEEKS BEFORE PRESENTATION)
     Route: 048

REACTIONS (2)
  - Cutaneous lupus erythematosus [Recovered/Resolved with Sequelae]
  - Concomitant disease aggravated [Unknown]
